FAERS Safety Report 20890783 (Version 1)
Quarter: 2022Q2

REPORT INFORMATION
  Report Type: Spontaneous
  Country: BY (occurrence: BY)
  Receive Date: 20220530
  Receipt Date: 20220530
  Transmission Date: 20220721
  Serious: Yes (Other)
  Sender: FDA-Public Use
  Company Number: BY-NOVARTISPH-NVSC2022BY123800

PATIENT
  Age: 68 Year
  Sex: Male

DRUGS (1)
  1. AMOXICILLIN [Suspect]
     Active Substance: AMOXICILLIN
     Indication: Otitis media
     Dosage: 1000 MG, QD
     Route: 048
     Dates: start: 20210905

REACTIONS (4)
  - Anaphylactic shock [Recovering/Resolving]
  - Hypotension [Recovering/Resolving]
  - Urticaria [Recovering/Resolving]
  - Bronchospasm [Recovering/Resolving]

NARRATIVE: CASE EVENT DATE: 20210905
